FAERS Safety Report 26169023 (Version 1)
Quarter: 2025Q4

REPORT INFORMATION
  Report Type: Spontaneous
  Country: CN (occurrence: CN)
  Receive Date: 20251217
  Receipt Date: 20251217
  Transmission Date: 20260119
  Serious: Yes (Death, Other)
  Sender: AMGEN
  Company Number: CN-AMGEN-CHNSP2025243371

PATIENT

DRUGS (9)
  1. ETANERCEPT [Suspect]
     Active Substance: ETANERCEPT
     Indication: Engraftment syndrome
     Dosage: 0.4 MILLIGRAM/KG,  2 TIMES/WK FOR 2-4 DOSES
     Route: 065
  2. ETANERCEPT [Suspect]
     Active Substance: ETANERCEPT
     Indication: Off label use
  3. METHYLPREDNISOLONE [Concomitant]
     Active Substance: METHYLPREDNISOLONE
     Dosage: QD, 1-2 MG/KG/D, TAPERED
     Route: 065
  4. CYCLOSPORINE [Concomitant]
     Active Substance: CYCLOSPORINE
     Dosage: UNK
     Route: 065
  5. TACROLIMUS [Concomitant]
     Active Substance: TACROLIMUS
     Dosage: UNK
     Route: 065
  6. MYCOPHENOLATE MOFETIL [Concomitant]
     Active Substance: MYCOPHENOLATE MOFETIL
     Dosage: 20 MILLIGRAM/KG, QD(20 MG/KG/DAY)
     Route: 065
  7. CYCLOPHOSPHAMIDE [Concomitant]
     Active Substance: CYCLOPHOSPHAMIDE
     Dosage: 10 MILLIGRAM/KG/DAY, QD
     Route: 065
  8. BUSULFAN [Concomitant]
     Active Substance: BUSULFAN
     Dosage: 3.2 MILLIGRAM/KG/DAY, QD
     Route: 065
  9. FLUDARABINE [Concomitant]
     Active Substance: FLUDARABINE PHOSPHATE
     Dosage: 30 MILLIGRAM/M2/DAY, QD
     Route: 065

REACTIONS (15)
  - Death [Fatal]
  - Engraftment syndrome [Not Recovered/Not Resolved]
  - Acute graft versus host disease [Unknown]
  - Cytomegalovirus infection reactivation [Not Recovered/Not Resolved]
  - Epstein-Barr virus infection reactivation [Not Recovered/Not Resolved]
  - Pneumonia [Unknown]
  - Sepsis [Unknown]
  - Drug effective for unapproved indication [Unknown]
  - Treatment failure [Unknown]
  - Off label use [Unknown]
  - Infection [Unknown]
  - Gastrointestinal infection [Unknown]
  - Cytomegalovirus infection [Unknown]
  - Epstein-Barr virus infection [Unknown]
  - Urinary tract infection [Unknown]
